FAERS Safety Report 6603452-1 (Version None)
Quarter: 2010Q1

REPORT INFORMATION
  Report Type: 
  Country: None (occurrence: None)
  Receive Date: 20100226
  Receipt Date: 20090611
  Transmission Date: 20100710
  Serious: No
  Sender: FDA-Public Use
  Company Number: A0790412A

PATIENT
  Age: 26 Year
  Sex: Female

DRUGS (3)
  1. VALTREX [Suspect]
     Indication: GENITAL HERPES
     Dosage: 1000MG TWICE PER DAY
     Route: 048
     Dates: start: 20090604, end: 20090608
  2. ORTHO TRI-CYCLEN [Concomitant]
  3. PREDNISONE [Concomitant]

REACTIONS (3)
  - EYE SWELLING [None]
  - PRURITUS [None]
  - RASH ERYTHEMATOUS [None]
